FAERS Safety Report 18290936 (Version 1)
Quarter: 2020Q3

REPORT INFORMATION
  Report Type: Spontaneous
  Country: AU (occurrence: AU)
  Receive Date: 20200921
  Receipt Date: 20200921
  Transmission Date: 20201103
  Serious: Yes (Hospitalization)
  Sender: FDA-Public Use
  Company Number: AU-JNJFOC-20200923962

PATIENT
  Age: 18 Year
  Sex: Female
  Weight: 100 kg

DRUGS (6)
  1. TOPIRAMATE. [Concomitant]
     Active Substance: TOPIRAMATE
  2. METFORMIN [Concomitant]
     Active Substance: METFORMIN HYDROCHLORIDE
  3. INVEGA TRINZA [Suspect]
     Active Substance: PALIPERIDONE PALMITATE
     Indication: SCHIZOPHRENIA
     Route: 030
  4. INVEGA TRINZA [Suspect]
     Active Substance: PALIPERIDONE PALMITATE
  5. INVEGA TRINZA [Suspect]
     Active Substance: PALIPERIDONE PALMITATE
  6. QUETIAPINE. [Concomitant]
     Active Substance: QUETIAPINE
     Dosage: AT MID?DAY.

REACTIONS (6)
  - Underdose [Unknown]
  - Inappropriate schedule of product administration [Unknown]
  - Wrong technique in product usage process [Unknown]
  - Intentional self-injury [Unknown]
  - Schizophrenia [Recovered/Resolved]
  - Off label use [Unknown]
